FAERS Safety Report 4661826-2 (Version None)
Quarter: 2005Q2

REPORT INFORMATION
  Report Type: 
  Country: None (occurrence: None)
  Receive Date: 20050511
  Receipt Date: 20050511
  Transmission Date: 20051028
  Serious: Yes (Hospitalization)
  Sender: FDA-Public Use
  Company Number: None

PATIENT
  Age: 53 Year
  Sex: Male

DRUGS (11)
  1. FUROSEMIDE [Suspect]
     Indication: CARDIAC DISORDER
     Dosage: 60 MG BID
     Dates: start: 20011204
  2. LOVENOX [Concomitant]
  3. GATIFLOXACIN [Concomitant]
  4. POTASSIUM CHLORIDE [Concomitant]
  5. WARFARIN [Concomitant]
  6. LORTAB [Concomitant]
  7. ISOSORBIDE [Concomitant]
  8. FOSINOPRIL [Concomitant]
  9. NITROGLYCERIN [Concomitant]
  10. BISACODYL [Concomitant]
  11. HYOSCYAMINE [Concomitant]

REACTIONS (2)
  - DIZZINESS [None]
  - POLYURIA [None]
